FAERS Safety Report 11642393 (Version 3)
Quarter: 2015Q4

REPORT INFORMATION
  Report Type: Report from Study
  Country: US (occurrence: US)
  Receive Date: 20151019
  Receipt Date: 20151211
  Transmission Date: 20160304
  Serious: No
  Sender: FDA-Public Use
  Company Number: PHHY2015US123697

PATIENT
  Age: 46 Year
  Sex: Female

DRUGS (1)
  1. GILENYA [Suspect]
     Active Substance: FINGOLIMOD HYDROCHLORIDE
     Indication: MULTIPLE SCLEROSIS
     Dosage: UNK
     Route: 048

REACTIONS (1)
  - Sinus bradycardia [Unknown]

NARRATIVE: CASE EVENT DATE: 20150911
